FAERS Safety Report 9481311 (Version 1)
Quarter: 2013Q3

REPORT INFORMATION
  Report Type: Spontaneous
  Country: US (occurrence: US)
  Receive Date: 20130828
  Receipt Date: 20130828
  Transmission Date: 20140515
  Serious: Yes (Other)
  Sender: FDA-Public Use
  Company Number: US-AMGEN-KDL159694

PATIENT
  Age: 41 Year
  Sex: Female

DRUGS (2)
  1. ENBREL [Suspect]
     Indication: RHEUMATOID ARTHRITIS
     Dosage: 50 MG, QWK
     Route: 058
     Dates: start: 20000901
  2. AUROTHIOGLUCOSE [Concomitant]
     Dosage: 75 MG, BID
     Route: 048
     Dates: start: 2004

REACTIONS (2)
  - Pituitary tumour recurrent [Unknown]
  - Vertigo [Recovered/Resolved]
